FAERS Safety Report 11148196 (Version 2)
Quarter: 2015Q2

REPORT INFORMATION
  Report Type: Spontaneous
  Country: IT (occurrence: IT)
  Receive Date: 20150529
  Receipt Date: 20150618
  Transmission Date: 20150821
  Serious: Yes (Life-Threatening)
  Sender: FDA-Public Use
  Company Number: IT-FRI-1000077039

PATIENT
  Age: 59 Year
  Sex: Female

DRUGS (8)
  1. NORITREN [Suspect]
     Active Substance: NORTRIPTYLINE HYDROCHLORIDE
     Indication: DEPRESSION
     Dosage: 750 MG
     Route: 048
     Dates: start: 20150512, end: 20150512
  2. LAMICTAL [Suspect]
     Active Substance: LAMOTRIGINE
     Indication: EPILEPSY
     Dosage: 4200 MG
     Route: 048
     Dates: start: 20150512, end: 20150512
  3. PROZAC [Suspect]
     Active Substance: FLUOXETINE HYDROCHLORIDE
     Indication: DEPRESSION
     Dosage: 280 MG
     Route: 048
     Dates: start: 20150512, end: 20150512
  4. SURMONTIL [Suspect]
     Active Substance: TRIMIPRAMINE MALEATE
     Indication: DEPRESSION
     Dosage: 625 MG
     Route: 048
     Dates: start: 20150512, end: 20150512
  5. SAMYR [Concomitant]
     Active Substance: METHIONINE
     Indication: DEPRESSION
     Route: 030
  6. NEBIVOLOL [Suspect]
     Active Substance: NEBIVOLOL
     Indication: ESSENTIAL HYPERTENSION
     Dosage: 70 MG
     Route: 048
     Dates: start: 20150512, end: 20150512
  7. TORVAST [Suspect]
     Active Substance: ATORVASTATIN
     Indication: HYPERCHOLESTEROLAEMIA
     Dosage: 300 MG
     Route: 048
     Dates: start: 20150512, end: 20150512
  8. XANAX [Concomitant]
     Active Substance: ALPRAZOLAM
     Indication: ANXIETY
     Route: 048

REACTIONS (5)
  - Miosis [Recovering/Resolving]
  - Traumatic coma [Recovering/Resolving]
  - Suicide attempt [Recovering/Resolving]
  - Hypotension [Recovering/Resolving]
  - Overdose [Recovered/Resolved]

NARRATIVE: CASE EVENT DATE: 20150512
